FAERS Safety Report 8482970-8 (Version None)
Quarter: 2012Q3

REPORT INFORMATION
  Report Type: 
  Country: None (occurrence: None)
  Receive Date: 20120702
  Receipt Date: 20120618
  Transmission Date: 20120928
  Serious: No
  Sender: FDA-Public Use
  Company Number: US-ASTRAZENECA-2012SE40817

PATIENT
  Age: 84 Year
  Sex: Female

DRUGS (7)
  1. DOXASOZIN [Concomitant]
  2. EXELON [Concomitant]
  3. GLIPIZIDE [Concomitant]
  4. LISINOPRIL [Concomitant]
  5. SIMVASTATIN [Concomitant]
  6. ARIMIDEX [Suspect]
     Route: 048
     Dates: start: 20120511
  7. FUROSEMIDE [Concomitant]

REACTIONS (1)
  - FAECES DISCOLOURED [None]
